FAERS Safety Report 23044033 (Version 3)
Quarter: 2024Q1

REPORT INFORMATION
  Report Type: Spontaneous
  Country: US (occurrence: US)
  Receive Date: 20231009
  Receipt Date: 20240108
  Transmission Date: 20240410
  Serious: Yes (Other)
  Sender: FDA-Public Use
  Company Number: US-BRISTOL-MYERS SQUIBB COMPANY-2023-140400

PATIENT
  Age: 50 Year
  Sex: Male

DRUGS (14)
  1. YERVOY [Suspect]
     Active Substance: IPILIMUMAB
     Indication: Colon cancer
     Dosage: DOSE : UNAVAILABLE;     FREQ : EVERY 28 DAYS
     Route: 042
     Dates: start: 20230907
  2. YERVOY [Suspect]
     Active Substance: IPILIMUMAB
     Dates: start: 20230927
  3. YERVOY [Suspect]
     Active Substance: IPILIMUMAB
     Dates: start: 20230906
  4. OPDIVO [Suspect]
     Active Substance: NIVOLUMAB
     Indication: Colon cancer
     Dates: start: 20230906
  5. OPDIVO [Suspect]
     Active Substance: NIVOLUMAB
     Dates: start: 20230927
  6. GABAPENTIN [Concomitant]
     Active Substance: GABAPENTIN
     Indication: Product used for unknown indication
     Dosage: GABAPENTIN 6 OF THOSE A DAY 300 MG
  7. FENTANYL [Concomitant]
     Active Substance: FENTANYL\FENTANYL CITRATE
     Indication: Product used for unknown indication
  8. METHOCARBAMOL [Concomitant]
     Active Substance: METHOCARBAMOL
     Indication: Product used for unknown indication
  9. DILTIAZEM [Concomitant]
     Active Substance: DILTIAZEM
     Indication: Product used for unknown indication
  10. ELIQUIS [Concomitant]
     Active Substance: APIXABAN
     Indication: Product used for unknown indication
  11. DEXAMETHASONE [Concomitant]
     Active Substance: DEXAMETHASONE
     Indication: Product used for unknown indication
  12. OMEPRAZOLE [Concomitant]
     Active Substance: OMEPRAZOLE
     Indication: Product used for unknown indication
  13. STOOL SOFTENER (DOCUSATE) [Concomitant]
     Active Substance: DOCUSATE
     Indication: Product used for unknown indication
  14. ERGOCALCIFEROL [Concomitant]
     Active Substance: ERGOCALCIFEROL
     Indication: Product used for unknown indication

REACTIONS (6)
  - Malignant neoplasm progression [Unknown]
  - Neuroendocrine carcinoma [Unknown]
  - Colon cancer metastatic [Unknown]
  - Constipation [Unknown]
  - Brain neoplasm [Unknown]
  - Eyelid ptosis [Unknown]
